FAERS Safety Report 15152729 (Version 1)
Quarter: 2018Q3

REPORT INFORMATION
  Report Type: Other
  Country: RU (occurrence: RU)
  Receive Date: 20180717
  Receipt Date: 20180717
  Transmission Date: 20181010
  Serious: No
  Sender: FDA-Public Use
  Company Number: RU-LUPIN PHARMACEUTICALS INC.-2018-03706

PATIENT
  Age: 21 Year
  Sex: Male
  Weight: 57 kg

DRUGS (8)
  1. MACLEVO [Concomitant]
     Indication: PULMONARY TUBERCULOSIS
     Dosage: UNK
     Route: 048
     Dates: start: 20120921
  2. KANAMYCIN [Concomitant]
     Active Substance: KANAMYCIN\KANAMYCIN A SULFATE
     Indication: PULMONARY TUBERCULOSIS
     Dosage: UNK
     Route: 030
     Dates: start: 20120921
  3. THIAMINE [Concomitant]
     Active Substance: THIAMINE
     Indication: PROPHYLAXIS
     Dosage: UNK
     Route: 030
     Dates: start: 20120919
  4. PYRIDOXIN [Concomitant]
     Active Substance: PYRIDOXINE
     Indication: PROPHYLAXIS
     Dosage: UNK
     Route: 030
     Dates: start: 20120929
  5. RIFABUTIN. [Suspect]
     Active Substance: RIFABUTIN
     Indication: PULMONARY TUBERCULOSIS
     Dosage: 0.45 G, QD
     Route: 048
     Dates: start: 20120921, end: 20120924
  6. COXERIN [Concomitant]
     Indication: PULMONARY TUBERCULOSIS
     Dosage: UNK
     Route: 048
     Dates: start: 20120921
  7. PYRAZINAMIDE. [Concomitant]
     Active Substance: PYRAZINAMIDE
     Indication: PULMONARY TUBERCULOSIS
     Dosage: UNK
     Route: 048
     Dates: start: 20120921
  8. PASK [Concomitant]
     Active Substance: AMINOSALICYLATE SODIUM
     Indication: PULMONARY TUBERCULOSIS
     Dosage: UNK
     Dates: start: 20120921

REACTIONS (1)
  - Body temperature increased [Recovered/Resolved]

NARRATIVE: CASE EVENT DATE: 20120924
